FAERS Safety Report 18260518 (Version 2)
Quarter: 2020Q4

REPORT INFORMATION
  Report Type: Report from Study
  Country: US (occurrence: US)
  Receive Date: 20200914
  Receipt Date: 20201005
  Transmission Date: 20210113
  Serious: Yes (Other)
  Sender: FDA-Public Use
  Company Number: US-TEVA-2020-US-1827610

PATIENT
  Age: 23 Year
  Sex: Female

DRUGS (2)
  1. NORGESTIMATE-ETHINYL ESTRADIOL [Concomitant]
     Active Substance: ETHINYL ESTRADIOL\NORGESTIMATE
     Indication: CONTRACEPTION
  2. CLARAVIS [Suspect]
     Active Substance: ISOTRETINOIN
     Route: 065
     Dates: start: 20200429, end: 20200903

REACTIONS (2)
  - Treatment noncompliance [Unknown]
  - Unintended pregnancy [Unknown]
